FAERS Safety Report 10011180 (Version 1)
Quarter: 2014Q1

REPORT INFORMATION
  Report Type: Spontaneous
  Country: JP (occurrence: None)
  Receive Date: 20140312
  Receipt Date: 20140312
  Transmission Date: 20141002
  Serious: Yes (Life-Threatening, Hospitalization, Disabling)
  Sender: FDA-Public Use
  Company Number: VAL_03025_2014

PATIENT
  Age: 31 Year
  Sex: Female

DRUGS (8)
  1. METHYLERGOMETRINE [Suspect]
     Indication: PRODUCT USED FOR UNKNOWN INDICATION
     Dosage: (FREQUENCY UNSPECIFIED) INTRAVENOUS (NOT OTHERWISE SPECIFIED))
     Route: 042
  2. UTERON [Suspect]
     Indication: THREATENED LABOUR
     Dosage: (FREQUENCY UNSPECIFIED)), (66.67 UG IX/MINUTE INTRAVENOUS (NOT OTHERWISE SPECIFIED))
     Route: 042
  3. FENTANYL [Suspect]
     Indication: EPIDURAL ANAESTHESIA
     Dosage: (DF EPIDIRAL)
  4. PHENYLEPHRINE [Suspect]
     Indication: PRODUCT USED FOR UNKNOWN INDICATION
     Dosage: (DF INTRAVENOUS (NOT OTHERWISE SPECIFIED))
  5. PROPOFOL [Suspect]
     Indication: SEDATION
     Dosage: (DF INTRAVENOUS (NOT OTHERWISE SPECIFIED))
  6. DROPERIDOL [Suspect]
     Indication: SEDATION
     Dosage: (DF INTRAVENOUS (NOT OTHERWISE SPECIFIED))
  7. OXYTOCIN [Suspect]
     Indication: PRODUCT USED FOR UNKNOWN INDICATION
     Dosage: (FREQUENCY UNSPECIFIED)
  8. BUPIVACAINE [Suspect]
     Indication: EPIDURAL ANAESTHESIA
     Dosage: (DF)

REACTIONS (22)
  - Peripartum cardiomyopathy [None]
  - Pulmonary oedema [None]
  - Respiratory disorder [None]
  - Ventricular hypokinesia [None]
  - Diastolic dysfunction [None]
  - Ventricular fibrillation [None]
  - Pericardial effusion [None]
  - Gestational hypertension [None]
  - Maternal exposure during pregnancy [None]
  - Blood uric acid increased [None]
  - Caesarean section [None]
  - Urine flow decreased [None]
  - Left atrial dilatation [None]
  - Cardiac failure [None]
  - Aspartate aminotransferase increased [None]
  - Blood lactate dehydrogenase increased [None]
  - Blood urea decreased [None]
  - Blood potassium increased [None]
  - Prothrombin time shortened [None]
  - Activated partial thromboplastin time prolonged [None]
  - Ejection fraction decreased [None]
  - Ejection fraction decreased [None]
